FAERS Safety Report 12225375 (Version 2)
Quarter: 2016Q2

REPORT INFORMATION
  Report Type: Spontaneous
  Country: US (occurrence: US)
  Receive Date: 20160331
  Receipt Date: 20160520
  Transmission Date: 20160815
  Serious: Yes (Other)
  Sender: FDA-Public Use
  Company Number: PHEH2016US007583

PATIENT
  Age: 86 Year
  Sex: Female

DRUGS (3)
  1. SIMVASTATIN. [Concomitant]
     Active Substance: SIMVASTATIN
     Indication: PRODUCT USED FOR UNKNOWN INDICATION
     Route: 065
  2. RECLAST [Suspect]
     Active Substance: ZOLEDRONIC ACID
     Indication: PRODUCT USED FOR UNKNOWN INDICATION
     Route: 065
     Dates: start: 20160201
  3. GABAPENTIN. [Concomitant]
     Active Substance: GABAPENTIN
     Indication: PRODUCT USED FOR UNKNOWN INDICATION
     Route: 065

REACTIONS (8)
  - Headache [Unknown]
  - Abdominal pain [Unknown]
  - Fatigue [Unknown]
  - Metastases to lung [Unknown]
  - Visual impairment [Unknown]
  - Metastatic malignant melanoma [Unknown]
  - Metastases to central nervous system [Unknown]
  - Diplopia [Unknown]

NARRATIVE: CASE EVENT DATE: 20160401
